FAERS Safety Report 8572309-1 (Version None)
Quarter: 2012Q3

REPORT INFORMATION
  Report Type: 
  Country: None (occurrence: None)
  Receive Date: 20120806
  Receipt Date: 20120730
  Transmission Date: 20120928
  Serious: Yes (Other)
  Sender: FDA-Public Use
  Company Number: CH-ELI_LILLY_AND_COMPANY-CH201207007259

PATIENT
  Age: 68 Year
  Sex: Female
  Weight: 67 kg

DRUGS (4)
  1. FORTEO [Suspect]
     Dosage: 20 UG, QD
     Route: 058
     Dates: start: 20120707, end: 20120718
  2. CALCIUM + VITAMIN D [Concomitant]
     Route: 048
  3. FORTEO [Suspect]
     Indication: OSTEOPOROSIS
     Dosage: 20 UG, QD
     Route: 058
     Dates: start: 20120308, end: 20120501
  4. FORTEO [Suspect]
     Dosage: 20 UG, QD
     Route: 058
     Dates: start: 20120515, end: 20120604

REACTIONS (3)
  - ATRIAL FLUTTER [None]
  - ATRIAL FIBRILLATION [None]
  - SALIVARY HYPERSECRETION [None]
